FAERS Safety Report 7133465-5 (Version None)
Quarter: 2010Q4

REPORT INFORMATION
  Report Type: 
  Country: None (occurrence: None)
  Receive Date: 20101202
  Receipt Date: 20101123
  Transmission Date: 20110411
  Serious: Yes (Other)
  Sender: FDA-Public Use
  Company Number: US-MYLANLABS-2010S1015661

PATIENT
  Age: 63 Year
  Sex: Male
  Weight: 136.08 kg

DRUGS (7)
  1. FENTANYL-100 [Suspect]
     Indication: ARTHRALGIA
     Dosage: Q 72 HOURS
     Route: 062
     Dates: start: 20100818
  2. HYDROCODONE [Concomitant]
     Indication: BREAKTHROUGH PAIN
  3. LIDOCAINE HYDROCHLORIDE IN PLASTIC CONTAINER [Concomitant]
     Route: 062
  4. TRAZODONE [Concomitant]
  5. SOMA [Concomitant]
  6. DIAZEPAM [Concomitant]
  7. LAXATIVE [Concomitant]

REACTIONS (19)
  - AMNESIA [None]
  - ASTHENIA [None]
  - BURNING SENSATION [None]
  - CHEST PAIN [None]
  - CONFUSIONAL STATE [None]
  - DECREASED APPETITE [None]
  - DRUG INEFFECTIVE [None]
  - HALLUCINATION [None]
  - HYPERHIDROSIS [None]
  - INSOMNIA [None]
  - MENTAL STATUS CHANGES [None]
  - MIGRAINE [None]
  - MOOD ALTERED [None]
  - MUSCULAR WEAKNESS [None]
  - PAIN [None]
  - RASH [None]
  - SUICIDAL IDEATION [None]
  - TREMOR [None]
  - VISUAL IMPAIRMENT [None]
